FAERS Safety Report 9890064 (Version 1)
Quarter: 2014Q1

REPORT INFORMATION
  Report Type: Spontaneous
  Country: US (occurrence: US)
  Receive Date: 20140212
  Receipt Date: 20140212
  Transmission Date: 20141002
  Serious: No
  Sender: FDA-Public Use
  Company Number: US-BIOGENIDEC-2014BI011052

PATIENT
  Age: 59 Year
  Sex: Male

DRUGS (1)
  1. TECFIDERA [Suspect]
     Indication: MULTIPLE SCLEROSIS
     Route: 048
     Dates: start: 20131206

REACTIONS (9)
  - Night sweats [Unknown]
  - Dizziness [Unknown]
  - Speech disorder [Unknown]
  - Gait disturbance [Unknown]
  - Prescribed underdose [Not Recovered/Not Resolved]
  - Nausea [Unknown]
  - Vomiting [Unknown]
  - Asthenia [Unknown]
  - Flushing [Unknown]
